FAERS Safety Report 15750178 (Version 1)
Quarter: 2018Q4

REPORT INFORMATION
  Report Type: Spontaneous
  Country: US (occurrence: US)
  Receive Date: 20181205
  Receipt Date: 20181205
  Transmission Date: 20190205
  Serious: No
  Sender: FDA-Public Use
  Company Number: None

PATIENT
  Age: 53 Year
  Sex: Male

DRUGS (2)
  1. TACROLIMUS CAP 5MG [Suspect]
     Active Substance: TACROLIMUS
     Indication: PANCREAS TRANSPLANT
     Dates: start: 201802
  2. TACROLIMUS CAP 5MG [Suspect]
     Active Substance: TACROLIMUS
     Indication: LIVER AND SMALL INTESTINE TRANSPLANT
     Dates: start: 201802

REACTIONS (4)
  - Post procedural complication [None]
  - Product dose omission [None]
  - Pancreas transplant [None]
  - Liver and small intestine transplant [None]

NARRATIVE: CASE EVENT DATE: 20181204
